FAERS Safety Report 4881391-4 (Version None)
Quarter: 2005Q4

REPORT INFORMATION
  Report Type: 
  Country: None (occurrence: None)
  Receive Date: 20051212
  Receipt Date: 20051004
  Transmission Date: 20060501
  Serious: No
  Sender: FDA-Public Use
  Company Number: 2005-02058

PATIENT
  Age: 57 Year
  Sex: Female
  Weight: 48.5 kg

DRUGS (5)
  1. VELCADE [Suspect]
     Indication: MULTIPLE MYELOMA
     Dosage: INTRAVENOUS
     Route: 042
     Dates: start: 20050929, end: 20050929
  2. COUMADIN [Concomitant]
  3. ESCITALOPRAM (ESCITALOPRAM) [Concomitant]
  4. ATIVAN [Concomitant]
  5. HYDROMORPHONE HCL [Concomitant]

REACTIONS (4)
  - ASTHENIA [None]
  - NAUSEA [None]
  - PALPITATIONS [None]
  - TACHYCARDIA [None]
